FAERS Safety Report 8533563-5 (Version None)
Quarter: 2012Q3

REPORT INFORMATION
  Report Type: 
  Country: None (occurrence: None)
  Receive Date: 20120724
  Receipt Date: 20120719
  Transmission Date: 20120928
  Serious: Yes (Disabling)
  Sender: FDA-Public Use
  Company Number: GB-PFIZER INC-2012174683

PATIENT
  Age: 73 Year
  Sex: Male

DRUGS (7)
  1. LANSOPRAZOLE [Concomitant]
  2. METFORMIN HYDROCHLORIDE [Concomitant]
  3. AMLODIPINE [Concomitant]
  4. REPAGLINIDE [Concomitant]
  5. EPLERENONE [Suspect]
     Indication: CARDIAC FAILURE CONGESTIVE
     Dosage: 100 MG, UNK
     Route: 048
  6. FERROUS FUMARATE [Concomitant]
  7. SIMVASTATIN [Concomitant]

REACTIONS (2)
  - ARTERIAL THROMBOSIS [None]
  - CEREBROVASCULAR ACCIDENT [None]
